FAERS Safety Report 8199522-X (Version None)
Quarter: 2012Q1

REPORT INFORMATION
  Report Type: 
  Country: None (occurrence: None)
  Receive Date: 20120310
  Receipt Date: 20120308
  Transmission Date: 20120608
  Serious: No
  Sender: FDA-Public Use
  Company Number: US-PFIZER INC-2012062513

PATIENT
  Sex: Female
  Weight: 25 kg

DRUGS (1)
  1. ZOLOFT [Suspect]
     Indication: ANXIETY
     Dosage: UNK, 1X/DAY
     Route: 048
     Dates: start: 20120223, end: 20120308

REACTIONS (3)
  - INCORRECT DOSE ADMINISTERED [None]
  - DRUG LABEL CONFUSION [None]
  - ORAL DISCOMFORT [None]
